FAERS Safety Report 5715379-8 (Version None)
Quarter: 2008Q2

REPORT INFORMATION
  Report Type: 
  Country: None (occurrence: None)
  Receive Date: 20080423
  Receipt Date: 20080411
  Transmission Date: 20081010
  Serious: Yes (Other)
  Sender: FDA-Public Use
  Company Number: US-PFIZER INC-2008033125

PATIENT
  Sex: Male
  Weight: 84.8 kg

DRUGS (12)
  1. LYRICA [Suspect]
     Indication: NEUROPATHY PERIPHERAL
  2. FUROSEMIDE [Concomitant]
  3. NORVASC [Concomitant]
  4. RANITIDINE [Concomitant]
  5. ZETIA [Concomitant]
  6. CARBIDOPA AND LEVODOPA [Concomitant]
  7. TAMSULOSIN HCL [Concomitant]
  8. ACETYLSALICYLIC ACID SRT [Concomitant]
  9. CENTRUM SILVER [Concomitant]
  10. NEXIUM [Concomitant]
  11. ALEVE [Concomitant]
  12. DRUG, UNSPECIFIED [Concomitant]

REACTIONS (3)
  - EYE DISORDER [None]
  - MACULAR DEGENERATION [None]
  - VISUAL FIELD DEFECT [None]
